FAERS Safety Report 6929753-5 (Version None)
Quarter: 2010Q3

REPORT INFORMATION
  Report Type: 
  Country: None (occurrence: None)
  Receive Date: 20100813
  Receipt Date: 20100730
  Transmission Date: 20110219
  Serious: Yes (Hospitalization, Other)
  Sender: FDA-Public Use
  Company Number: 2010SP041523

PATIENT
  Age: 46 Year
  Sex: Male
  Weight: 87.136 kg

DRUGS (6)
  1. CLARINEX-D 12 HOUR [Suspect]
     Indication: SEASONAL ALLERGY
     Dosage: 5 MG; PO
     Route: 048
     Dates: start: 20100501
  2. CAFFEINE [Suspect]
     Dates: start: 20100526
  3. DILANTIN [Suspect]
     Indication: GRAND MAL CONVULSION
     Dates: end: 20100526
  4. PSEUDOEPHEDRINE [Suspect]
     Dates: start: 20100526
  5. FLONASE [Concomitant]
  6. ACETAMINOPHEN [Concomitant]

REACTIONS (1)
  - GRAND MAL CONVULSION [None]
